FAERS Safety Report 12546129 (Version 1)
Quarter: 2016Q3

REPORT INFORMATION
  Report Type: Spontaneous
  Country: US (occurrence: US)
  Receive Date: 20160711
  Receipt Date: 20160711
  Transmission Date: 20161109
  Serious: No
  Sender: FDA-Public Use
  Company Number: US-JNJFOC-20160321171

PATIENT
  Sex: Female

DRUGS (1)
  1. INVEGA SUSTENNA [Suspect]
     Active Substance: PALIPERIDONE PALMITATE
     Indication: PRODUCT USED FOR UNKNOWN INDICATION
     Route: 030

REACTIONS (7)
  - Judgement impaired [Unknown]
  - Motor dysfunction [Unknown]
  - Hyperprolactinaemia [Unknown]
  - White blood cell count decreased [Unknown]
  - Cognitive disorder [Unknown]
  - Oestradiol decreased [Unknown]
  - Amenorrhoea [Unknown]
